FAERS Safety Report 9537566 (Version 2)
Quarter: 2013Q4

REPORT INFORMATION
  Report Type: Report from Study
  Country: DE (occurrence: DE)
  Receive Date: 20130919
  Receipt Date: 20131002
  Transmission Date: 20140711
  Serious: Yes (Hospitalization)
  Sender: FDA-Public Use
  Company Number: DE-ROCHE-1277720

PATIENT
  Age: 65 Year
  Sex: Female

DRUGS (7)
  1. BEVACIZUMAB [Suspect]
     Indication: COLORECTAL CANCER METASTATIC
     Dosage: DATE OF MOST RECENT DOSE PRIOR TO SAE: 13/SEP/2013, LAST DOSE ADMINISTERED: 5 MG/KG
     Route: 065
     Dates: start: 20130830
  2. OXALIPLATIN [Suspect]
     Indication: COLORECTAL CANCER METASTATIC
     Dosage: DATE OF MOST RECENT DOSE PRIOR TO SAE: 13/SEP/2013, LAST DOSE ADMINISTERED: 85 MG/KG
     Route: 065
     Dates: start: 20130830
  3. FOLINIC ACID [Suspect]
     Indication: COLORECTAL CANCER METASTATIC
     Dosage: DATE OF MOST RECENT DOSE PRIOR TO SAE: 13/SEP/2013, LAST DOSE ADMINISTERED: 400 MG/M2
     Route: 065
     Dates: start: 20130830
  4. FLUOROURACIL [Suspect]
     Indication: COLORECTAL CANCER METASTATIC
     Dosage: DATE OF MOST RECENT DOSE PRIOR TO SAE: 13/SEP/2013, LAST DOSE ADMINISTERED: 3200 MG/M2
     Route: 065
     Dates: start: 20130830
  5. BISOPROLOL [Concomitant]
     Indication: HYPERTENSION
     Route: 048
  6. PANTOZOL (GERMANY) [Concomitant]
     Indication: PROPHYLAXIS AGAINST GASTROINTESTINAL ULCER
     Route: 048
  7. NOVALGIN [Concomitant]
     Indication: PAIN
     Route: 048

REACTIONS (1)
  - General physical health deterioration [Recovered/Resolved]
